FAERS Safety Report 20407163 (Version 1)
Quarter: 2022Q1

REPORT INFORMATION
  Report Type: Spontaneous
  Country: US (occurrence: None)
  Receive Date: 20220131
  Receipt Date: 20220131
  Transmission Date: 20220423
  Serious: Yes (Other)
  Sender: FDA-Public Use
  Company Number: None

PATIENT
  Age: 0 Year
  Sex: Female
  Weight: 0.53 kg

DRUGS (1)
  1. BERACTANT [Suspect]
     Active Substance: BERACTANT
     Indication: Neonatal respiratory distress
     Dosage: OTHER FREQUENCY : ONCE;?
     Route: 007
     Dates: start: 20220112, end: 20220112

REACTIONS (3)
  - General physical health deterioration [None]
  - Product deposit [None]
  - Endotracheal intubation complication [None]

NARRATIVE: CASE EVENT DATE: 20220112
